FAERS Safety Report 7336079-7 (Version None)
Quarter: 2011Q1

REPORT INFORMATION
  Report Type: 
  Country: None (occurrence: None)
  Receive Date: 20110307
  Receipt Date: 20110303
  Transmission Date: 20110831
  Serious: Yes (Other)
  Sender: FDA-Public Use
  Company Number: CA-ASTRAZENECA-2011SE11118

PATIENT
  Age: 56 Year
  Sex: Female

DRUGS (9)
  1. SUSTAIN-RELEASED MORPHINE [Concomitant]
     Indication: PAIN
     Route: 048
     Dates: start: 20030110
  2. NEXIUM [Suspect]
     Indication: GASTROOESOPHAGEAL REFLUX DISEASE
     Route: 048
     Dates: start: 20030713
  3. CRESTOR [Suspect]
     Indication: BLOOD CHOLESTEROL INCREASED
     Route: 048
     Dates: start: 20100401
  4. NITROGLYCERIN [Concomitant]
     Indication: ANGINA PECTORIS
     Route: 060
     Dates: start: 20100212
  5. ASPIRIN [Concomitant]
     Indication: CARDIOVASCULAR EVENT PROPHYLAXIS
  6. METOPROLOL [Concomitant]
     Indication: ANGINA PECTORIS
     Route: 048
     Dates: start: 20100212
  7. METOPROLOL [Concomitant]
     Indication: HYPERTENSION
     Route: 048
     Dates: start: 20100212
  8. ADVAIR DISKUS 100/50 [Concomitant]
     Indication: CHRONIC OBSTRUCTIVE PULMONARY DISEASE
     Dosage: 250/50 TWICE A DAY
     Route: 048
     Dates: start: 20100101
  9. ADVAIR DISKUS 100/50 [Concomitant]
     Indication: DYSPNOEA
     Dosage: 250/50 TWICE A DAY
     Route: 048
     Dates: start: 20100101

REACTIONS (2)
  - PAIN IN EXTREMITY [None]
  - ARTHRALGIA [None]
